FAERS Safety Report 7494475-1 (Version None)
Quarter: 2011Q2

REPORT INFORMATION
  Report Type: 
  Country: None (occurrence: None)
  Receive Date: 20110520
  Receipt Date: 20110511
  Transmission Date: 20111010
  Serious: Yes (Death, Hospitalization)
  Sender: FDA-Public Use
  Company Number: US-EISAI INC-E7273-00230-CLI-US

PATIENT
  Sex: Male
  Weight: 67 kg

DRUGS (5)
  1. FERROUS SULFATE TAB [Concomitant]
     Route: 048
     Dates: start: 20100715
  2. SIMVASTATIN [Concomitant]
     Route: 048
  3. TRICOR [Concomitant]
     Route: 048
     Dates: start: 20101130
  4. TARGRETIN [Suspect]
     Route: 048
     Dates: start: 20101228
  5. FISH OIL [Concomitant]
     Route: 048

REACTIONS (2)
  - ANAEMIA [None]
  - NEOPLASM MALIGNANT [None]
